FAERS Safety Report 6365195-1 (Version None)
Quarter: 2009Q3

REPORT INFORMATION
  Report Type: 
  Country: None (occurrence: None)
  Receive Date: 20090919
  Receipt Date: 20090812
  Transmission Date: 20100115
  Serious: No
  Sender: FDA-Public Use
  Company Number: US-ABBOTT-09P-163-0590778-00

PATIENT
  Age: 66 Year
  Sex: Male

DRUGS (3)
  1. HUMIRA [Suspect]
     Indication: CROHN'S DISEASE
     Route: 058
     Dates: start: 20090714, end: 20090714
  2. HUMIRA [Suspect]
     Route: 058
     Dates: start: 20090728
  3. HUMIRA [Suspect]

REACTIONS (1)
  - GASTROINTESTINAL INFECTION [None]
